FAERS Safety Report 12314589 (Version 2)
Quarter: 2016Q3

REPORT INFORMATION
  Report Type: Spontaneous
  Country: JP (occurrence: JP)
  Receive Date: 20160428
  Receipt Date: 20160914
  Transmission Date: 20161109
  Serious: Yes (Hospitalization, Other)
  Sender: FDA-Public Use
  Company Number: JP-GLAXOSMITHKLINE-JP2016JPN048617

PATIENT
  Age: 78 Year
  Sex: Female
  Weight: 36 kg

DRUGS (15)
  1. MIRAPEX-LA [Concomitant]
     Dosage: 0.375 MG, QD
  2. MAGLAX [Concomitant]
     Active Substance: MAGNESIUM OXIDE
     Dosage: 660 MG, TID
  3. DONEPEZIL HYDROCHLORIDE. [Concomitant]
     Active Substance: DONEPEZIL HYDROCHLORIDE
     Dosage: 5 MG, QD
  4. THEO-DUR [Concomitant]
     Active Substance: THEOPHYLLINE ANHYDROUS
     Dosage: 200 MG, BID
  5. SERETIDE [Suspect]
     Active Substance: FLUTICASONE PROPIONATE\SALMETEROL XINAFOATE
     Indication: ASTHMA
     Dosage: 5 DF, BID
     Route: 055
     Dates: start: 20160404, end: 20160410
  6. MADOPAR [Concomitant]
     Active Substance: BENSERAZIDE HYDROCHLORIDE\LEVODOPA
     Dosage: 3 DF, 1D
  7. ALFACALCIDOL [Concomitant]
     Active Substance: ALFACALCIDOL
     Dosage: 1 ?G, QD
  8. PRANLUKAST [Concomitant]
     Active Substance: PRANLUKAST
     Dosage: 225 MG, BID
  9. KLARICID [Concomitant]
     Active Substance: CLARITHROMYCIN
     Dosage: 200 MG, BID
  10. PREDONINE TABLETS [Concomitant]
     Dosage: 20 MG, QD
  11. AMBROXOL HYDROCHLORIDE [Concomitant]
     Active Substance: AMBROXOL HYDROCHLORIDE
     Dosage: 1 DF, TID
  12. CARBOCISTEINE [Concomitant]
     Active Substance: CARBOCYSTEINE
     Dosage: 500 MG, TID
  13. SERETIDE [Suspect]
     Active Substance: FLUTICASONE PROPIONATE\SALMETEROL XINAFOATE
     Dosage: UNK
     Route: 055
     Dates: start: 20160414
  14. FP (JAPAN) [Concomitant]
     Dosage: 2.5 MG, BID
  15. CALBLOCK [Concomitant]
     Active Substance: AZELNIDIPINE
     Dosage: 8 MG, QD
     Dates: end: 20160411

REACTIONS (7)
  - Gait disturbance [Recovered/Resolved]
  - Hypotension [Recovered/Resolved]
  - Weight decreased [Recovered/Resolved]
  - Hypokalaemia [Recovered/Resolved]
  - Overdose [Unknown]
  - Nausea [Recovered/Resolved]
  - Decreased appetite [Recovered/Resolved]

NARRATIVE: CASE EVENT DATE: 20160404
